FAERS Safety Report 5270387-9 (Version None)
Quarter: 2007Q1

REPORT INFORMATION
  Report Type: 
  Country: None (occurrence: None)
  Receive Date: 20070320
  Receipt Date: 20051117
  Transmission Date: 20070707
  Serious: Yes (Hospitalization)
  Sender: FDA-Public Use
  Company Number: GB-BOEHRINGER INGELHEIM PHARMACEUTICALS, INC.-2005-UK-02381UK

PATIENT
  Age: 42 Year
  Sex: Male
  Weight: 66.5 kg

DRUGS (5)
  1. ASASANTIN RETARD (00015/0224) [Suspect]
     Indication: PROPHYLAXIS
     Dosage: 1 DOSAGE FORM / DAY
     Route: 048
     Dates: start: 20050412
  2. IRBESARTAN [Suspect]
     Indication: BLOOD PRESSURE
     Dosage: 150 MG/DAY
     Route: 048
     Dates: start: 20040319, end: 20050705
  3. ADALAT CC [Concomitant]
     Indication: HYPERTENSION
     Dosage: 30 MG/DAY
     Route: 048
     Dates: start: 20020513
  4. BENDROFLUAZIDE [Concomitant]
     Indication: HYPERTENSION
     Dosage: 2.5 MG/DAY
     Route: 048
     Dates: start: 20040824
  5. ATORVASTATIN CALCIUM [Concomitant]
     Indication: BLOOD CHOLESTEROL INCREASED
     Dosage: 10 MG/DAY
     Route: 065
     Dates: start: 19991110

REACTIONS (5)
  - ABDOMINAL PAIN LOWER [None]
  - ARTHRALGIA [None]
  - DRUG INTERACTION [None]
  - NAUSEA [None]
  - RENAL FAILURE [None]
